FAERS Safety Report 9993019 (Version 2)
Quarter: 2014Q1

REPORT INFORMATION
  Report Type: Report from Study
  Country: US (occurrence: US)
  Receive Date: 20140310
  Receipt Date: 20140310
  Transmission Date: 20141002
  Serious: No
  Sender: FDA-Public Use
  Company Number: US-ABBVIE-11P-163-0857368-00

PATIENT
  Age: 51 Year
  Sex: Female

DRUGS (4)
  1. LUPRON DEPOT 11.25 MG [Suspect]
     Indication: VAGINAL HAEMORRHAGE
     Dates: start: 20110822
  2. LUPRON DEPOT 11.25 MG [Suspect]
     Indication: ENDOMETRIOSIS
     Dates: start: 20131230
  3. WELLBUTRIN [Concomitant]
     Indication: PRODUCT USED FOR UNKNOWN INDICATION
  4. NASACORT AQ [Concomitant]
     Indication: PRODUCT USED FOR UNKNOWN INDICATION

REACTIONS (5)
  - Vaginal haemorrhage [Recovered/Resolved]
  - Libido decreased [Not Recovered/Not Resolved]
  - Vaginal haemorrhage [Recovering/Resolving]
  - Nausea [Not Recovered/Not Resolved]
  - Hot flush [Not Recovered/Not Resolved]
